FAERS Safety Report 4900205-7 (Version None)
Quarter: 2006Q1

REPORT INFORMATION
  Report Type: 
  Country: None (occurrence: None)
  Receive Date: 20060203
  Receipt Date: 20051010
  Transmission Date: 20060701
  Serious: No
  Sender: FDA-Public Use
  Company Number: US-GLAXOSMITHKLINE-A0577704A

PATIENT
  Age: 66 Year
  Sex: Female

DRUGS (11)
  1. ARIXTRA [Suspect]
     Dosage: 2.5MG THREE TIMES PER DAY
     Route: 058
     Dates: start: 20051004
  2. OXYCODONE [Concomitant]
  3. ALBUTEROL SULFATE AUTOHALER [Concomitant]
  4. PEPCID [Concomitant]
  5. DOCUSATE [Concomitant]
  6. SPIRONOLACTONE [Concomitant]
  7. DILTIAZEM [Concomitant]
  8. PERCOCET [Concomitant]
  9. ONDANSETRON [Concomitant]
  10. LAXATIVE [Concomitant]
  11. DIPHENHYDRAMINE [Concomitant]

REACTIONS (2)
  - MEDICATION ERROR [None]
  - OVERDOSE [None]
